FAERS Safety Report 14123157 (Version 4)
Quarter: 2021Q3

REPORT INFORMATION
  Report Type: Other
  Country: US (occurrence: US)
  Receive Date: 20171025
  Receipt Date: 20210823
  Transmission Date: 20211014
  Serious: Yes (Hospitalization)
  Sender: FDA-Public Use
  Company Number: US-ROCHE-1958822

PATIENT
  Age: 37 Year
  Sex: Female
  Weight: 83.99 kg

DRUGS (9)
  1. CELEBREX [Concomitant]
     Active Substance: CELECOXIB
     Indication: JUVENILE IDIOPATHIC ARTHRITIS
     Route: 048
     Dates: start: 20170502, end: 20170530
  2. ADALAT [Concomitant]
     Active Substance: NIFEDIPINE
     Indication: HYPERTENSION
     Route: 048
     Dates: start: 20170502, end: 20170613
  3. ADALAT [Concomitant]
     Active Substance: NIFEDIPINE
     Route: 048
     Dates: start: 20170614, end: 20170622
  4. BABY ASPIRIN [Concomitant]
     Active Substance: ASPIRIN
     Dosage: FOR PREVENTION OF MISCARRIAGE
     Route: 048
     Dates: start: 20170530, end: 20170725
  5. TOCILIZUMAB. [Suspect]
     Active Substance: TOCILIZUMAB
     Indication: JUVENILE IDIOPATHIC ARTHRITIS
     Route: 042
     Dates: start: 20150701, end: 20170530
  6. BABY ASPIRIN [Concomitant]
     Active Substance: ASPIRIN
     Route: 048
     Dates: start: 20170926
  7. PREDNISOLONE ACETATE. [Concomitant]
     Active Substance: PREDNISOLONE ACETATE
     Indication: UVEITIS
     Route: 048
     Dates: start: 20170901
  8. PROMETRIUM [Concomitant]
     Active Substance: PROGESTERONE
     Dosage: FOR PREVENTION OF MISCARRIAGE
     Route: 048
     Dates: start: 20170530, end: 20170725
  9. ACETAMINOPHEN. [Concomitant]
     Active Substance: ACETAMINOPHEN
     Indication: JUVENILE IDIOPATHIC ARTHRITIS
     Route: 048
     Dates: start: 20170502

REACTIONS (2)
  - Maternal exposure during pregnancy [Unknown]
  - Subchorionic haematoma [Recovered/Resolved]

NARRATIVE: CASE EVENT DATE: 20170725
